FAERS Safety Report 5384840-0 (Version None)
Quarter: 2007Q3

REPORT INFORMATION
  Report Type: 
  Country: None (occurrence: None)
  Receive Date: 20070706
  Receipt Date: 20070517
  Transmission Date: 20080115
  Serious: No
  Sender: FDA-Public Use
  Company Number: PHEH2007US07916

PATIENT
  Age: 81 Year
  Sex: Female
  Weight: 105.2 kg

DRUGS (4)
  1. TEKTURNA [Suspect]
     Indication: HYPERTENSION
     Dosage: 300 MG, QD
     Dates: start: 20070514, end: 20070517
  2. DIOVAN [Concomitant]
  3. NORVASC [Concomitant]
  4. CLONIDINE [Concomitant]

REACTIONS (3)
  - HEADACHE [None]
  - PAIN [None]
  - PRURITUS GENERALISED [None]
